FAERS Safety Report 7475388-8 (Version None)
Quarter: 2011Q2

REPORT INFORMATION
  Report Type: 
  Country: None (occurrence: None)
  Receive Date: 20110512
  Receipt Date: 20110504
  Transmission Date: 20111010
  Serious: Yes (Disabling, Other)
  Sender: FDA-Public Use
  Company Number: FR-B.I. PHARMACEUTICALS,INC./RIDGEFIELD-2011-FF-00354FF

PATIENT
  Sex: Male
  Weight: 72 kg

DRUGS (5)
  1. PRAMIPEXOLE DIHYCHLLORIDE [Suspect]
     Indication: PARKINSON'S DISEASE
     Dosage: 2.1 MG
     Route: 048
     Dates: start: 20100101, end: 20110101
  2. PLAVIX [Concomitant]
     Indication: ARTERITIS CORONARY
     Dosage: 75 MG
     Route: 048
     Dates: start: 20090101
  3. MODOPAR [Concomitant]
     Indication: PARKINSON'S DISEASE
     Dosage: 375 MG
     Route: 048
     Dates: start: 20100101
  4. ATENOLOL [Concomitant]
     Indication: ARTERITIS CORONARY
     Dosage: 100 MG
     Route: 048
     Dates: start: 20090101
  5. ATORVASTATIN CALCIUM [Concomitant]
     Indication: ARTERITIS CORONARY
     Dosage: 80 MG
     Route: 048
     Dates: start: 20090101

REACTIONS (3)
  - PULMONARY HYPERTENSION [None]
  - OEDEMA PERIPHERAL [None]
  - DYSPNOEA [None]
